FAERS Safety Report 6344394-9 (Version None)
Quarter: 2009Q3

REPORT INFORMATION
  Report Type: 
  Country: None (occurrence: None)
  Receive Date: 20090908
  Receipt Date: 20090831
  Transmission Date: 20100115
  Serious: Yes (Other)
  Sender: FDA-Public Use
  Company Number: PHEH2009US10133

PATIENT
  Sex: Female
  Weight: 58.9 kg

DRUGS (4)
  1. GLEEVEC [Suspect]
     Indication: GASTROINTESTINAL STROMAL TUMOUR
     Dosage: 400 MG, QD
     Route: 048
     Dates: start: 20090501
  2. CELEBREX [Concomitant]
  3. ESTRADIOL [Concomitant]
  4. LIPITOR [Concomitant]

REACTIONS (1)
  - ALVEOLITIS ALLERGIC [None]
